FAERS Safety Report 13901514 (Version 3)
Quarter: 2019Q2

REPORT INFORMATION
  Report Type: Report from Study
  Country: CA (occurrence: CA)
  Receive Date: 20170824
  Receipt Date: 20190429
  Transmission Date: 20190711
  Serious: No
  Sender: FDA-Public Use
  Company Number: CA-AMGEN-CANSL2017125412

PATIENT
  Age: 80 Year
  Sex: Female
  Weight: 56.69 kg

DRUGS (2)
  1. METOPROLOL. [Concomitant]
     Active Substance: METOPROLOL
     Dosage: UNK
  2. PROLIA [Suspect]
     Active Substance: DENOSUMAB
     Indication: BONE DISORDER
     Dosage: 1 DOSAGE FORM, Q6MO
     Route: 058
     Dates: start: 20141027

REACTIONS (7)
  - Bone loss [Not Recovered/Not Resolved]
  - Tooth fracture [Unknown]
  - Endodontic procedure [Not Recovered/Not Resolved]
  - Infection [Unknown]
  - Oral infection [Recovered/Resolved]
  - Tooth disorder [Not Recovered/Not Resolved]
  - Impaired healing [Not Recovered/Not Resolved]

NARRATIVE: CASE EVENT DATE: 2017
